FAERS Safety Report 9163872 (Version 1)
Quarter: 2013Q1

REPORT INFORMATION
  Report Type: Spontaneous
  Country: BE (occurrence: BE)
  Receive Date: 20130314
  Receipt Date: 20130314
  Transmission Date: 20140127
  Serious: Yes (Other)
  Sender: FDA-Public Use
  Company Number: BE-ROCHE-1201492

PATIENT
  Sex: Male

DRUGS (4)
  1. XOLAIR [Suspect]
     Indication: ASTHMA
     Route: 058
     Dates: start: 20130207
  2. XOLAIR [Suspect]
     Route: 058
     Dates: start: 20130221
  3. INUVAIR [Concomitant]
  4. MONTELUKAST [Concomitant]

REACTIONS (2)
  - Wheezing [Recovered/Resolved]
  - Chest discomfort [Unknown]
